FAERS Safety Report 8565406 (Version 1)
Quarter: 2020Q3

REPORT INFORMATION
  Report Type: Report from Study
  Country: DE (occurrence: DE)
  Receive Date: 20120516
  Receipt Date: 20120516
  Transmission Date: 20201104
  Serious: Yes (Other)
  Sender: FDA-Public Use
  Company Number: DE-ROCHE-1068097

PATIENT
  Age: 79 Year
  Sex: Female

DRUGS (2)
  1. ACTONEL PLUS CALCIUM D [Concomitant]
  2. IBANDRONIC ACID. [Suspect]
     Active Substance: IBANDRONIC ACID
     Indication: OSTEOPOROSIS
     Route: 042
     Dates: start: 20101203, end: 20101203

REACTIONS (3)
  - Forearm fracture [Recovered/Resolved]
  - Thoracic vertebral fracture [Recovered/Resolved]
  - Lumbar vertebral fracture [Recovered/Resolved]

NARRATIVE: CASE EVENT DATE: 20101203
